FAERS Safety Report 5942852-X (Version None)
Quarter: 2008Q4

REPORT INFORMATION
  Report Type: 
  Country: None (occurrence: None)
  Receive Date: 20081106
  Receipt Date: 20081027
  Transmission Date: 20090506
  Serious: Yes (Other)
  Sender: FDA-Public Use
  Company Number: US-ROCHE-593993

PATIENT
  Sex: Male
  Weight: 81.6 kg

DRUGS (2)
  1. CAPECITABINE [Suspect]
     Indication: COLORECTAL CANCER
     Dosage: DOSE: 150 MG X 2 TAB + 500MG X 8 TAB BID (1 WEEK ON, 1 WEEK OFF)
     Route: 048
     Dates: start: 20080827, end: 20080926
  2. COUMADIN [Concomitant]

REACTIONS (1)
  - MASS [None]
